FAERS Safety Report 19454210 (Version 1)
Quarter: 2021Q2

REPORT INFORMATION
  Report Type: Spontaneous
  Country: TR (occurrence: TR)
  Receive Date: 20210623
  Receipt Date: 20210623
  Transmission Date: 20210717
  Serious: Yes (Life-Threatening, Hospitalization)
  Sender: FDA-Public Use
  Company Number: TR-SLATE RUN PHARMACEUTICALS-21TR000539

PATIENT

DRUGS (8)
  1. AZITHROMYCIN USP [Suspect]
     Active Substance: AZITHROMYCIN
     Indication: MATERNAL EXPOSURE TIMING UNSPECIFIED
     Dosage: 2 X 250 MG MAINTENANCE DOSE
     Route: 015
  2. AZITHROMYCIN USP [Suspect]
     Active Substance: AZITHROMYCIN
     Dosage: 2 X 500 MG LOADING DOSE
     Route: 015
  3. HYDROXYCHLOROQUINE [Concomitant]
     Active Substance: HYDROXYCHLOROQUINE
     Dosage: 2 X 200 MG MAINTENANCE DOSE
     Route: 015
  4. HYDROXYCHLOROQUINE [Concomitant]
     Active Substance: HYDROXYCHLOROQUINE
     Indication: MATERNAL EXPOSURE TIMING UNSPECIFIED
     Dosage: 200 MG TABLETS, 2 ? 1
     Route: 015
  5. HYDROXYCHLOROQUINE [Concomitant]
     Active Substance: HYDROXYCHLOROQUINE
     Dosage: 2 X 400 MG LOADING DOSE
     Route: 015
  6. ENOXAPARIN [Concomitant]
     Active Substance: ENOXAPARIN
     Indication: MATERNAL EXPOSURE TIMING UNSPECIFIED
     Dosage: 0.8 IU/ML
     Route: 015
  7. ENOXAPARIN [Concomitant]
     Active Substance: ENOXAPARIN
     Dosage: 0.4 IU/ML
     Route: 015
  8. METHYLPREDNISOLONE. [Concomitant]
     Active Substance: METHYLPREDNISOLONE
     Indication: MATERNAL EXPOSURE TIMING UNSPECIFIED
     Dosage: 40 MILLIGRAM
     Route: 015

REACTIONS (3)
  - Apgar score low [Recovered/Resolved]
  - Foetal exposure during pregnancy [Recovered/Resolved]
  - Premature baby [Unknown]
